FAERS Safety Report 8186649-1 (Version None)
Quarter: 2012Q1

REPORT INFORMATION
  Report Type: 
  Country: None (occurrence: None)
  Receive Date: 20120305
  Receipt Date: 20120305
  Transmission Date: 20120608
  Serious: Yes (Other)
  Sender: FDA-Public Use
  Company Number: None

PATIENT
  Age: 55 Year
  Sex: Female
  Weight: 131 kg

DRUGS (3)
  1. GLYPRIDE (GLIMEPIRIDE) [Concomitant]
  2. AMBI EVEN + CLEAR EXFOLIATING WASH [Suspect]
     Dosage: , AM, TOPICAL
     Route: 061
     Dates: start: 20110508, end: 20110511
  3. AMBI FADE CREAM NORMAL SKIN 2OZ [Suspect]
     Dosage: SMALL, AMT, 1X AM, TOPICAL
     Route: 061
     Dates: start: 20110508, end: 20110511

REACTIONS (2)
  - DYSPHAGIA [None]
  - DRUG HYPERSENSITIVITY [None]
